FAERS Safety Report 15432144 (Version 1)
Quarter: 2018Q3

REPORT INFORMATION
  Report Type: Spontaneous
  Country: US (occurrence: US)
  Receive Date: 20180926
  Receipt Date: 20180926
  Transmission Date: 20181010
  Serious: Yes (Other)
  Sender: FDA-Public Use
  Company Number: US-TEVA-2018-US-957293

PATIENT
  Age: 84 Year
  Sex: Female

DRUGS (1)
  1. SPIRONOLACTONE. [Suspect]
     Active Substance: SPIRONOLACTONE
     Route: 065

REACTIONS (3)
  - Weight increased [Unknown]
  - Drug ineffective [Unknown]
  - Cardiac failure congestive [Recovered/Resolved]
